FAERS Safety Report 9702595 (Version 1)
Quarter: 2013Q4

REPORT INFORMATION
  Report Type: Report from Study
  Country: US (occurrence: US)
  Receive Date: 20131121
  Receipt Date: 20131121
  Transmission Date: 20140711
  Serious: Yes (Hospitalization)
  Sender: FDA-Public Use
  Company Number: US-US-EMD SERONO, INC.-7250617

PATIENT
  Sex: Male

DRUGS (2)
  1. REBIF [Suspect]
     Indication: PRODUCT USED FOR UNKNOWN INDICATION
     Route: 058
     Dates: start: 20121008
  2. REBIF [Suspect]
     Route: 058
     Dates: end: 201311

REACTIONS (4)
  - Balance disorder [Unknown]
  - Anaemia [Unknown]
  - Fall [Unknown]
  - Muscular weakness [Not Recovered/Not Resolved]
